FAERS Safety Report 7019133-9 (Version None)
Quarter: 2010Q3

REPORT INFORMATION
  Report Type: 
  Country: None (occurrence: None)
  Receive Date: 20100928
  Receipt Date: 20100920
  Transmission Date: 20110219
  Serious: Yes (Hospitalization)
  Sender: FDA-Public Use
  Company Number: B0676433A

PATIENT
  Sex: Female
  Weight: 104.1 kg

DRUGS (2)
  1. PAZOPANIB [Suspect]
     Indication: MALIGNANT NEOPLASM PROGRESSION
     Dates: start: 20100907
  2. IFOSFAMIDE [Suspect]
     Indication: MALIGNANT NEOPLASM PROGRESSION
     Dates: start: 20100914

REACTIONS (3)
  - DECREASED APPETITE [None]
  - DISCOMFORT [None]
  - FLUID INTAKE REDUCED [None]
